FAERS Safety Report 26130776 (Version 2)
Quarter: 2025Q4

REPORT INFORMATION
  Report Type: Spontaneous
  Country: EU (occurrence: EU)
  Receive Date: 20251208
  Receipt Date: 20251215
  Transmission Date: 20260119
  Serious: Yes (Hospitalization, Congenital Anomaly, Other)
  Sender: PIERRE FABRE MEDICAMENT
  Company Number: EU-SUN PHARMACEUTICAL INDUSTRIES LTD-2022RR-333280

PATIENT
  Age: 36 Year
  Sex: Female
  Weight: 1.26 kg

DRUGS (6)
  1. PROPRANOLOL [Suspect]
     Active Substance: PROPRANOLOL HYDROCHLORIDE
     Indication: Autoimmune hepatitis
     Dosage: 40 MG, BID (2/DAY) (MORNING AND IN THE EVENING)
     Route: 065
  2. TACROLIMUS [Suspect]
     Active Substance: TACROLIMUS
     Indication: Autoimmune hepatitis
     Dosage: 1 MG, BID (2/DAY)
  3. PERINDOPRIL [Suspect]
     Active Substance: PERINDOPRIL
     Indication: Blood pressure abnormal
     Dosage: 10 MG, DAILY
  4. ASPIRIN [Suspect]
     Active Substance: ASPIRIN
     Indication: Autoimmune hepatitis
     Dosage: 75 MG, DAILY
  5. METHYLPREDNISOLONE [Suspect]
     Active Substance: METHYLPREDNISOLONE
     Indication: Autoimmune hepatitis
     Dosage: 4 MG, DAILY, IN THE MORNING
  6. AZATHIOPRINE [Suspect]
     Active Substance: AZATHIOPRINE
     Indication: Autoimmune hepatitis
     Dosage: 50 MG, BID (2/DAY)

REACTIONS (9)
  - Premature baby [Unknown]
  - Low birth weight baby [Unknown]
  - Kidney enlargement [Unknown]
  - Renal disorder [Unknown]
  - Nephropathy [Unknown]
  - Hypocalvaria [Unknown]
  - Foetal exposure during pregnancy [Unknown]
  - Product use in unapproved indication [Unknown]
  - Off label use [Unknown]
